FAERS Safety Report 5600325-8 (Version None)
Quarter: 2007Q4

REPORT INFORMATION
  Report Type: 
  Country: None (occurrence: None)
  Receive Date: 20071227
  Receipt Date: 20070129
  Transmission Date: 20080405
  Serious: Yes (Disabling)
  Sender: FDA-Public Use
  Company Number: 2007S1000028

PATIENT
  Age: 36 Year
  Sex: Female

DRUGS (4)
  1. ACITRETIN [Suspect]
     Indication: HYPERKERATOSIS PALMARIS AND PLANTARIS
     Dosage: 20 MG;QD;PO   : 10 MG;QD;PO  PO
     Route: 048
     Dates: start: 20030801, end: 20030101
  2. ACITRETIN [Suspect]
     Indication: HYPERKERATOSIS PALMARIS AND PLANTARIS
     Dosage: 20 MG;QD;PO   : 10 MG;QD;PO  PO
     Route: 048
     Dates: start: 20040401, end: 20040101
  3. ACITRETIN [Suspect]
     Indication: HYPERKERATOSIS PALMARIS AND PLANTARIS
     Dosage: 20 MG;QD;PO   : 10 MG;QD;PO  PO
     Route: 048
     Dates: start: 20030101
  4. ORAL CONTRACEPTIVES NOS [Concomitant]

REACTIONS (1)
  - DYSPHONIA [None]
